FAERS Safety Report 21121702 (Version 4)
Quarter: 2022Q4

REPORT INFORMATION
  Report Type: Report from Study
  Country: FR (occurrence: FR)
  Receive Date: 20220722
  Receipt Date: 20221230
  Transmission Date: 20230112
  Serious: Yes (Other)
  Sender: FDA-Public Use
  Company Number: FR-SEATTLE GENETICS-2022SGN06774

PATIENT
  Age: 60 Year
  Sex: Female

DRUGS (6)
  1. TUCATINIB [Suspect]
     Active Substance: TUCATINIB
     Indication: Breast cancer metastatic
     Dosage: 600 MG, EVERY CYCLE
     Route: 048
     Dates: start: 20220524, end: 20220705
  2. TUCATINIB [Suspect]
     Active Substance: TUCATINIB
     Dosage: 250 MG, BID, EVERY CYCLE
     Route: 048
     Dates: start: 20220726, end: 20220729
  3. PHESGO [Suspect]
     Active Substance: HYALURONIDASE-ZZXF\PERTUZUMAB\TRASTUZUMAB
     Indication: Breast cancer metastatic
     Dosage: UNK
     Route: 058
     Dates: start: 20220524
  4. KEPPRA [Concomitant]
     Active Substance: LEVETIRACETAM
     Indication: Intracranial pressure increased
     Dosage: UNK
     Route: 048
     Dates: start: 20220321
  5. PREDNISOLONE [Concomitant]
     Active Substance: PREDNISOLONE
     Indication: Intracranial pressure increased
     Dosage: UNK
     Route: 048
     Dates: start: 202202
  6. OMEPRAZOLE [Concomitant]
     Active Substance: OMEPRAZOLE
     Indication: Prophylaxis
     Dosage: UNK
     Dates: start: 20220321

REACTIONS (1)
  - Hepatic cytolysis [Recovered/Resolved]

NARRATIVE: CASE EVENT DATE: 20220628
